FAERS Safety Report 7978742-0 (Version None)
Quarter: 2011Q4

REPORT INFORMATION
  Report Type: 
  Country: None (occurrence: None)
  Receive Date: 20111214
  Receipt Date: 20111212
  Transmission Date: 20120403
  Serious: Yes (Other)
  Sender: FDA-Public Use
  Company Number: US-PFIZER INC-2011302762

PATIENT
  Sex: Female

DRUGS (6)
  1. XANAX [Suspect]
     Indication: ANXIETY
  2. XANAX [Suspect]
     Indication: POST-TRAUMATIC STRESS DISORDER
     Dosage: UNK
  3. ALPRAZOLAM [Suspect]
     Indication: PANIC DISORDER
  4. XANAX [Suspect]
     Indication: PANIC DISORDER
  5. ALPRAZOLAM [Suspect]
     Indication: POST-TRAUMATIC STRESS DISORDER
     Dosage: 1 MG, 4X/DAY
     Route: 048
  6. ALPRAZOLAM [Suspect]
     Indication: ANXIETY

REACTIONS (6)
  - PALPITATIONS [None]
  - ASTHMA [None]
  - DRUG INEFFECTIVE [None]
  - PANIC ATTACK [None]
  - ANXIETY [None]
  - INSOMNIA [None]
